FAERS Safety Report 5648762-X (Version None)
Quarter: 2008Q1

REPORT INFORMATION
  Report Type: 
  Country: None (occurrence: None)
  Receive Date: 20080229
  Receipt Date: 20080213
  Transmission Date: 20080703
  Serious: Yes (Life-Threatening, Disabling)
  Sender: FDA-Public Use
  Company Number: 8027785

PATIENT
  Age: 49 Year
  Sex: Female
  Weight: 57.5 kg

DRUGS (10)
  1. KEPPRA [Suspect]
     Indication: EPILEPSY
     Dates: start: 20010101
  2. KEPPRA [Suspect]
     Indication: EPILEPSY
     Dosage: 2 G 2/D
     Dates: start: 20011022, end: 20020213
  3. KEPPRA [Suspect]
     Indication: EPILEPSY
     Dosage: 4.5 G/D
     Dates: start: 20020214, end: 20020605
  4. KEPPRA [Suspect]
     Indication: EPILEPSY
     Dosage: 3 G 2/D
     Dates: start: 20020606
  5. KEPPRA [Suspect]
     Indication: EPILEPSY
     Dosage: 1.5 G 2/D
     Dates: start: 20071102
  6. ASPIRIN [Concomitant]
  7. TOPIRAMATE [Concomitant]
  8. NORETHINDRONE ACETATE [Concomitant]
  9. ZONISAMIDE [Concomitant]
  10. LEVOTHYROXINE SODIUM [Concomitant]

REACTIONS (16)
  - AMNESIA [None]
  - ASTHENIA [None]
  - CONDITION AGGRAVATED [None]
  - CONFUSIONAL STATE [None]
  - CONVULSION [None]
  - DEEP VEIN THROMBOSIS [None]
  - DEPRESSED MOOD [None]
  - DISTURBANCE IN ATTENTION [None]
  - GASTROINTESTINAL DISORDER [None]
  - HYPOTONIA [None]
  - MOOD SWINGS [None]
  - MUSCULAR WEAKNESS [None]
  - PULMONARY EMBOLISM [None]
  - SLEEP DISORDER [None]
  - SOMNOLENCE [None]
  - WEIGHT DECREASED [None]
